FAERS Safety Report 9821839 (Version 3)
Quarter: 2014Q1

REPORT INFORMATION
  Report Type: Spontaneous
  Country: DE (occurrence: DE)
  Receive Date: 20140116
  Receipt Date: 20140312
  Transmission Date: 20141002
  Serious: Yes (Death, Other)
  Sender: FDA-Public Use
  Company Number: PHHY2013DE068391

PATIENT
  Sex: Female

DRUGS (2)
  1. AFINITOR [Suspect]
     Indication: NEUROENDOCRINE CARCINOMA
     Dosage: 10 MG,DAILY
     Dates: start: 20130612, end: 20130623
  2. AFINITOR [Suspect]
     Dosage: 10 MG, DAILY
     Dates: start: 20130630, end: 20130810

REACTIONS (4)
  - Hepatic failure [Fatal]
  - Peripheral artery thrombosis [Recovered/Resolved with Sequelae]
  - General physical health deterioration [Not Recovered/Not Resolved]
  - Malaise [Unknown]
